FAERS Safety Report 9726629 (Version 1)
Quarter: 2013Q4

REPORT INFORMATION
  Report Type: Spontaneous
  Country: GB (occurrence: GB)
  Receive Date: 20131203
  Receipt Date: 20131203
  Transmission Date: 20140711
  Serious: Yes (Other)
  Sender: FDA-Public Use
  Company Number: GB-BAYER-2013-145944

PATIENT
  Sex: Female

DRUGS (1)
  1. MIRENA [Suspect]
     Dosage: 20 ?G/D, CONT
     Route: 015
     Dates: start: 20131028

REACTIONS (6)
  - Genital haemorrhage [None]
  - Abdominal pain upper [None]
  - Abdominal pain [None]
  - Surgery [None]
  - Cyst [None]
  - Nephrolithiasis [None]
